FAERS Safety Report 10017397 (Version 1)
Quarter: 2014Q1

REPORT INFORMATION
  Report Type: Spontaneous
  Country: US (occurrence: US)
  Receive Date: 20140318
  Receipt Date: 20140318
  Transmission Date: 20141002
  Serious: No
  Sender: FDA-Public Use
  Company Number: US-PFIZER INC-2014074760

PATIENT
  Sex: Female
  Weight: 96.6 kg

DRUGS (7)
  1. FELDENE [Suspect]
     Dosage: UNK
  2. THIOMERSAL [Suspect]
     Dosage: UNK
  3. IMURAN [Suspect]
     Dosage: UNK
  4. ARAVA [Suspect]
     Dosage: UNK
  5. ASACOL [Suspect]
     Dosage: UNK
  6. CARDIZEM CD [Suspect]
     Dosage: UNK
  7. VIOXX [Suspect]
     Dosage: UNK

REACTIONS (1)
  - Drug hypersensitivity [Unknown]
